FAERS Safety Report 6558957-9 (Version None)
Quarter: 2010Q1

REPORT INFORMATION
  Report Type: 
  Country: None (occurrence: None)
  Receive Date: 20100129
  Receipt Date: 20100121
  Transmission Date: 20100710
  Serious: Yes (Hospitalization)
  Sender: FDA-Public Use
  Company Number: US-ELI_LILLY_AND_COMPANY-US201001004768

PATIENT
  Sex: Female

DRUGS (2)
  1. HUMALOG [Suspect]
     Indication: DIABETES MELLITUS
     Dosage: 35 U, 3/D
     Dates: start: 20090701
  2. LEVEMIR [Concomitant]

REACTIONS (2)
  - HEART RATE IRREGULAR [None]
  - INTRACARDIAC THROMBUS [None]
